FAERS Safety Report 8495702-4 (Version None)
Quarter: 2012Q3

REPORT INFORMATION
  Report Type: 
  Country: None (occurrence: None)
  Receive Date: 20120709
  Receipt Date: 20120707
  Transmission Date: 20120928
  Serious: No
  Sender: FDA-Public Use
  Company Number: US-PFIZER INC-2012162758

PATIENT
  Sex: Female

DRUGS (2)
  1. CELEBREX [Suspect]
     Dosage: UNK
     Dates: start: 20120101
  2. CELEBREX [Suspect]
     Dosage: 200 MG, 1X/DAY
     Dates: start: 20120101

REACTIONS (1)
  - DIZZINESS [None]
